FAERS Safety Report 13594534 (Version 1)
Quarter: 2017Q2

REPORT INFORMATION
  Report Type: Spontaneous
  Country: US (occurrence: US)
  Receive Date: 20170530
  Receipt Date: 20170530
  Transmission Date: 20170830
  Serious: No
  Sender: FDA-Public Use
  Company Number: US-009507513-1705USA014469

PATIENT
  Age: 15 Year
  Sex: Female
  Weight: 68.03 kg

DRUGS (1)
  1. NEXPLANON [Suspect]
     Active Substance: ETONOGESTREL
     Indication: CONTRACEPTION
     Dosage: IN LEFT ARM, 3 YEARS
     Route: 059
     Dates: start: 20150129

REACTIONS (2)
  - Weight increased [Unknown]
  - Menorrhagia [Unknown]

NARRATIVE: CASE EVENT DATE: 201702
